FAERS Safety Report 8763914 (Version 2)
Quarter: 2012Q4

REPORT INFORMATION
  Report Type: 
  Country: AU (occurrence: AU)
  Receive Date: 20120827
  Receipt Date: 20121026
  Transmission Date: 20130627
  Serious: Yes (Hospitalization, Other)
  Sender: FDA-Public Use
  Company Number: AU-ELI_LILLY_AND_COMPANY-AU201208006638

PATIENT
  Age: 82 Year
  Sex: Female

DRUGS (14)
  1. FORTEO [Suspect]
     Indication: OSTEOPOROSIS
     Dosage: UNK, qd
     Route: 065
     Dates: start: 20120120
  2. SOMAC [Concomitant]
     Indication: GASTROINTESTINAL DISORDER
     Dosage: 40 mg, qd
  3. FISH OIL [Concomitant]
     Dosage: 1000 mg, bid
     Route: 065
  4. LEXAPRO [Concomitant]
     Indication: OSTEOPOROSIS
     Dosage: 10 mg, bid
     Route: 065
  5. TEMAZEPAM [Concomitant]
     Indication: SLEEP DISORDER
     Dosage: 10 mg, each evening (before bed)
  6. ZANIDIP [Concomitant]
     Indication: CARDIAC DISORDER
     Dosage: UNK, unknown
     Route: 065
  7. ATACAND [Concomitant]
     Indication: CARDIAC DISORDER
     Dosage: 8 mg, qd
     Route: 065
  8. MAGMIN [Concomitant]
     Dosage: 500 mg, bid
     Route: 065
  9. VESICARE [Concomitant]
     Dosage: 10 mg, each morning
     Route: 065
     Dates: start: 20120727
  10. PREDNISOLONE [Concomitant]
     Dosage: 5 mg, twice in the morning
  11. PREDNISOLON [Concomitant]
     Dosage: 1 Gtt, qid
  12. XALATAN [Concomitant]
     Dosage: 1 Gtt, each evening (before bed)
  13. OPTIVE [Concomitant]
     Dosage: 1 Gtt, qid
  14. OSTEVIT-D [Concomitant]
     Dosage: 1000 IU, qd

REACTIONS (5)
  - Choking [Recovered/Resolved]
  - Oesophagitis [Recovered/Resolved]
  - Dyspnoea [Recovered/Resolved]
  - Feeling abnormal [Recovered/Resolved]
  - Cough [Recovered/Resolved]
